FAERS Safety Report 9616916 (Version 1)
Quarter: 2013Q4

REPORT INFORMATION
  Report Type: Spontaneous
  Country: US (occurrence: US)
  Receive Date: 20131011
  Receipt Date: 20131011
  Transmission Date: 20140711
  Serious: No
  Sender: FDA-Public Use
  Company Number: US-009507513-1310USA004814

PATIENT
  Age: 48 Year
  Sex: Female

DRUGS (2)
  1. MAXALT [Suspect]
     Dosage: 10 MG, AS NEEDED
     Route: 048
     Dates: start: 20131008
  2. ADVAIR [Concomitant]
     Indication: HEADACHE

REACTIONS (1)
  - Headache [Not Recovered/Not Resolved]
